FAERS Safety Report 4918693-9 (Version None)
Quarter: 2006Q1

REPORT INFORMATION
  Report Type: 
  Country: None (occurrence: None)
  Receive Date: 20060216
  Receipt Date: 20060207
  Transmission Date: 20060701
  Serious: Yes (Other)
  Sender: FDA-Public Use
  Company Number: US-2006-002308

PATIENT
  Age: 62 Year
  Sex: Male

DRUGS (2)
  1. ULTRAVIST (PHARMACY BULK) [Suspect]
     Indication: COMPUTERISED TOMOGRAM THORAX
     Dosage: 100 ML, 1  DOSE, INTRAVENOUS
     Route: 042
     Dates: start: 20060202, end: 20060202
  2. ANTIHYPERTINSIVES [Concomitant]

REACTIONS (8)
  - CARDIO-RESPIRATORY ARREST [None]
  - COLD SWEAT [None]
  - ERYTHEMA [None]
  - EYE ROLLING [None]
  - PARAESTHESIA [None]
  - PULSE ABSENT [None]
  - SNEEZING [None]
  - UNRESPONSIVE TO VERBAL STIMULI [None]
